FAERS Safety Report 8847877 (Version 3)
Quarter: 2013Q1

REPORT INFORMATION
  Report Type: Report from Study
  Country: US (occurrence: US)
  Receive Date: 20121018
  Receipt Date: 20130312
  Transmission Date: 20140127
  Serious: Yes (Hospitalization)
  Sender: FDA-Public Use
  Company Number: US-VERTEX PHARMACEUTICAL INC.-2012-022705

PATIENT
  Age: 54 Year
  Sex: Female
  Weight: 58 kg

DRUGS (9)
  1. VX-950 (TELAPREVIR) [Suspect]
     Indication: HEPATITIS C
     Dosage: 750 MG, TID
     Route: 048
  2. RIBAVIRIN [Suspect]
     Indication: HEPATITIS C
     Dosage: UNK
     Route: 048
  3. RIBAVIRIN [Suspect]
     Dosage: 600 UNK, UNK
     Route: 048
  4. PEGASYS [Suspect]
     Indication: HEPATITIS C
     Dosage: 180 MCG/M
     Route: 058
  5. SINGULAIR [Concomitant]
     Dosage: 10 MG, UNK
     Route: 048
  6. PHENERGAN [Concomitant]
     Dosage: 25 MG, UNK
     Route: 048
  7. TRAZODONE [Concomitant]
     Dosage: 50 MG, UNK
  8. LEVOTHYROXIN [Concomitant]
     Dosage: 50 ?G, UNK
     Route: 048
  9. SYMBICORT [Concomitant]
     Dosage: 80-4.5
     Route: 048

REACTIONS (6)
  - Anaemia [Unknown]
  - Lung disorder [Recovered/Resolved]
  - Rash maculo-papular [Recovered/Resolved]
  - Dysgeusia [Recovered/Resolved]
  - Nausea [Unknown]
  - Vomiting [Unknown]
